FAERS Safety Report 14577229 (Version 6)
Quarter: 2018Q2

REPORT INFORMATION
  Report Type: Report from Study
  Country: PH (occurrence: PH)
  Receive Date: 20180227
  Receipt Date: 20180531
  Transmission Date: 20180711
  Serious: Yes (Hospitalization)
  Sender: FDA-Public Use
  Company Number: PHHO2018PH002368

PATIENT
  Age: 61 Year
  Sex: Female
  Weight: 50 kg

DRUGS (6)
  1. LEE011 [Suspect]
     Active Substance: RIBOCICLIB
     Indication: BREAST CANCER
     Dosage: OT
     Route: 048
     Dates: start: 20180208, end: 20180213
  2. POTASSIUM CHLORIDE. [Concomitant]
     Active Substance: POTASSIUM CHLORIDE
     Indication: HYPOKALAEMIA
     Dosage: 40 MBQ, ONCE/SINGLE
     Route: 041
     Dates: start: 20180212
  3. LETROZOLE. [Suspect]
     Active Substance: LETROZOLE
     Indication: BREAST CANCER
     Dosage: UNK
     Route: 048
     Dates: start: 20180208
  4. POTASSIUM CITRATE. [Concomitant]
     Active Substance: POTASSIUM CITRATE
     Dosage: 1080 MG, TID
     Route: 048
     Dates: start: 20180220
  5. POTASSIUM CITRATE. [Concomitant]
     Active Substance: POTASSIUM CITRATE
     Indication: HYPOKALAEMIA
     Dosage: 1080 MG, BID
     Route: 048
     Dates: start: 20180214
  6. LEE011 [Suspect]
     Active Substance: RIBOCICLIB
     Dosage: OT
     Route: 048
     Dates: start: 20180312

REACTIONS (1)
  - Pneumonia [Recovered/Resolved]

NARRATIVE: CASE EVENT DATE: 20180212
